FAERS Safety Report 12114303 (Version 2)
Quarter: 2016Q1

REPORT INFORMATION
  Report Type: Spontaneous
  Country: JP (occurrence: JP)
  Receive Date: 20160225
  Receipt Date: 20160307
  Transmission Date: 20160526
  Serious: Yes (Other)
  Sender: FDA-Public Use
  Company Number: JP-ACTAVIS-2016-04098

PATIENT
  Age: 71 Year
  Sex: Male

DRUGS (8)
  1. FLUOROURACIL. [Suspect]
     Active Substance: FLUOROURACIL
     Dosage: 2743 MG/M2, CYCLICAL (80% DOSE) 46 HR
     Route: 065
  2. FOLINIC ACID [Suspect]
     Active Substance: LEUCOVORIN
     Dosage: 229 MG/M2, CYCLICAL (80% DOSE)
     Route: 065
  3. IRINOTECAN (UNKNOWN) [Suspect]
     Active Substance: IRINOTECAN
     Indication: RECTAL CANCER
     Dosage: 180 MG/M2, CYCLICAL ( 70% DOSE), 2 HR
     Route: 065
     Dates: start: 20061218
  4. FLUOROURACIL. [Suspect]
     Active Substance: FLUOROURACIL
     Dosage: 2400 MG/M2, CYCLICAL( 70 % DOSAGE) 46 HR
  5. FLUOROURACIL. [Suspect]
     Active Substance: FLUOROURACIL
     Indication: RECTAL CANCER
     Dosage: 400 MG/M2, CYCLICAL( 70% DOSE)
     Route: 040
     Dates: start: 20061218
  6. IRINOTECAN (UNKNOWN) [Suspect]
     Active Substance: IRINOTECAN
     Dosage: 206 MG/M2, CYCLICAL( 80% DOSE), 2 HR
     Route: 065
  7. FLUOROURACIL. [Suspect]
     Active Substance: FLUOROURACIL
     Dosage: 457 MG/M2, CYCLICAL (80 % DOSE)
     Route: 040
  8. FOLINIC ACID [Suspect]
     Active Substance: LEUCOVORIN
     Indication: RECTAL CANCER
     Dosage: 200 MG/M2, CYCLICAL (70% DOSE) 2 HR
     Route: 065
     Dates: start: 20061218

REACTIONS (1)
  - Bone marrow failure [Unknown]
